FAERS Safety Report 23693463 (Version 1)
Quarter: 2024Q2

REPORT INFORMATION
  Report Type: Spontaneous
  Country: IT (occurrence: IT)
  Receive Date: 20240401
  Receipt Date: 20240401
  Transmission Date: 20240716
  Serious: Yes (Hospitalization, Other)
  Sender: FDA-Public Use
  Company Number: None

PATIENT
  Age: 75 Year
  Sex: Male
  Weight: 70 kg

DRUGS (1)
  1. BAVENCIO [Suspect]
     Active Substance: AVELUMAB
     Indication: Bladder cancer
     Route: 042
     Dates: start: 20240216, end: 20240216

REACTIONS (3)
  - Hypoxia [Recovered/Resolved]
  - Dyspnoea [Recovered/Resolved with Sequelae]
  - Hypertension [Recovered/Resolved]

NARRATIVE: CASE EVENT DATE: 20240216
